FAERS Safety Report 23465271 (Version 2)
Quarter: 2024Q2

REPORT INFORMATION
  Report Type: Spontaneous
  Country: US (occurrence: US)
  Receive Date: 20240201
  Receipt Date: 20240503
  Transmission Date: 20240716
  Serious: Yes (Other)
  Sender: FDA-Public Use
  Company Number: US-SPECGX-T202400530

PATIENT
  Age: 80 Year
  Sex: Male

DRUGS (1)
  1. POSACONAZOLE [Suspect]
     Active Substance: POSACONAZOLE
     Indication: Pulmonary mucormycosis
     Dosage: 300 MILLIGRAM, QD
     Route: 065

REACTIONS (3)
  - Actinic keratosis [Recovering/Resolving]
  - Photosensitivity reaction [Unknown]
  - Product use in unapproved indication [Unknown]
